FAERS Safety Report 7628446-9 (Version None)
Quarter: 2011Q3

REPORT INFORMATION
  Report Type: 
  Country: None (occurrence: None)
  Receive Date: 20110722
  Receipt Date: 20110711
  Transmission Date: 20111222
  Serious: Yes (Hospitalization)
  Sender: FDA-Public Use
  Company Number: AU-JNJFOC-20110606719

PATIENT
  Sex: Male

DRUGS (23)
  1. OXYCODONE HCL [Concomitant]
     Indication: CANCER PAIN
     Route: 048
     Dates: start: 20081020
  2. FENTANYL [Concomitant]
     Indication: CANCER PAIN
     Route: 062
     Dates: start: 20110525
  3. PHOSPHATE-SANDOZ [Concomitant]
     Indication: BLOOD PHOSPHORUS DECREASED
     Route: 048
     Dates: start: 20110516
  4. LEUPROLIDE ACETATE [Concomitant]
     Indication: PROSTATE CANCER
     Route: 065
     Dates: start: 20030101
  5. PREDNISONE [Suspect]
     Indication: PROSTATE CANCER METASTATIC
     Route: 048
     Dates: start: 20101201
  6. RABEPRAZOLE SODIUM [Concomitant]
     Indication: GASTROOESOPHAGEAL REFLUX DISEASE
     Route: 048
     Dates: start: 20080617
  7. MORPHINE HCL ELIXIR [Concomitant]
     Indication: CANCER PAIN
     Route: 048
     Dates: start: 20101210
  8. TRIMETHOPRIM [Concomitant]
     Indication: URINARY TRACT INFECTION
     Route: 048
     Dates: start: 20110518
  9. ABIRATERONE ACETATE [Suspect]
     Route: 048
     Dates: start: 20081203, end: 20101130
  10. MOVIPREP [Concomitant]
     Indication: CONSTIPATION
     Route: 048
     Dates: start: 20101129
  11. PREDNISONE [Suspect]
     Route: 048
  12. ALLOPURINOL [Concomitant]
     Indication: GOUT
     Route: 048
     Dates: start: 20070201
  13. FORMULA 33 SE [Concomitant]
     Indication: ANTIINFLAMMATORY THERAPY
     Route: 048
     Dates: start: 20020222
  14. ELIGARD [Concomitant]
     Indication: PROSTATE CANCER
     Route: 058
     Dates: start: 20081203
  15. ROXITHROMYCIN [Concomitant]
     Indication: COUGH
     Route: 048
     Dates: start: 20110323
  16. ACETAMINOPHEN [Concomitant]
     Indication: CANCER PAIN
     Route: 048
     Dates: start: 20090129
  17. FENTANYL [Concomitant]
     Route: 062
     Dates: start: 20110118
  18. METOCLOPRAMIDE [Concomitant]
     Indication: NAUSEA
     Route: 048
     Dates: start: 20110213
  19. ABIRATERONE ACETATE [Suspect]
     Indication: PROSTATE CANCER METASTATIC
     Route: 048
     Dates: start: 20101201
  20. ZOLEDRONIC ACID [Concomitant]
     Indication: BONE DISORDER
     Route: 042
     Dates: start: 20080821
  21. COLOXYL WITH SENNA [Concomitant]
     Indication: CONSTIPATION
     Route: 048
     Dates: start: 20101209
  22. AUGMENTIN DUO FORTE [Concomitant]
     Indication: COUGH
     Route: 048
     Dates: start: 20110323
  23. SLOW-K [Concomitant]
     Indication: BLOOD POTASSIUM DECREASED
     Route: 048
     Dates: start: 20110516

REACTIONS (2)
  - PYREXIA [None]
  - SEPSIS [None]
